FAERS Safety Report 18968291 (Version 2)
Quarter: 2021Q1

REPORT INFORMATION
  Report Type: Spontaneous
  Country: BR (occurrence: BR)
  Receive Date: 20210304
  Receipt Date: 20210311
  Transmission Date: 20210420
  Serious: Yes (Other)
  Sender: FDA-Public Use
  Company Number: BR-TAKEDA-2021TUS013859

PATIENT
  Age: 40 Year
  Sex: Male
  Weight: 68 kg

DRUGS (1)
  1. DEXILANT [Suspect]
     Active Substance: DEXLANSOPRAZOLE
     Indication: GASTROOESOPHAGEAL REFLUX DISEASE
     Dosage: 60 MILLIGRAM, QD
     Route: 065
     Dates: start: 20210222, end: 20210222

REACTIONS (7)
  - Malaise [Unknown]
  - Hallucination [Unknown]
  - Off label use [Unknown]
  - Dyspnoea [Unknown]
  - Somnolence [Unknown]
  - Palpitations [Unknown]
  - Inappropriate affect [Unknown]

NARRATIVE: CASE EVENT DATE: 20210222
